FAERS Safety Report 13457032 (Version 1)
Quarter: 2017Q2

REPORT INFORMATION
  Report Type: Spontaneous
  Country: US (occurrence: US)
  Receive Date: 20170418
  Receipt Date: 20170418
  Transmission Date: 20170830
  Serious: Yes (Other)
  Sender: FDA-Public Use
  Company Number: None

PATIENT
  Age: 6 Year
  Sex: Male
  Weight: 18 kg

DRUGS (1)
  1. MONTELUKAST SODIUM. [Suspect]
     Active Substance: MONTELUKAST SODIUM
     Indication: MULTIPLE ALLERGIES
     Dosage: ?          QUANTITY:30 TABLET(S);?
     Route: 048
     Dates: start: 20170414, end: 20170418

REACTIONS (6)
  - Nightmare [None]
  - Irritability [None]
  - Violence-related symptom [None]
  - Palpitations [None]
  - Hallucination, auditory [None]
  - Memory impairment [None]

NARRATIVE: CASE EVENT DATE: 20170417
